FAERS Safety Report 12690273 (Version 2)
Quarter: 2016Q3

REPORT INFORMATION
  Report Type: Spontaneous
  Country: NL (occurrence: NL)
  Receive Date: 20160826
  Receipt Date: 20160907
  Transmission Date: 20161109
  Serious: Yes (Other)
  Sender: FDA-Public Use
  Company Number: NL-PFIZER INC-2016396366

PATIENT
  Sex: Male

DRUGS (3)
  1. PAMIDRONATE DISODIUM. [Suspect]
     Active Substance: PAMIDRONATE DISODIUM
     Indication: OSTEOPOROSIS
     Dosage: 1.0 MG/KG, EVERY FOUR MONTHS DURING THREE DAYS
     Route: 042
     Dates: start: 2006
  2. RISEDRONATE SODIUM. [Suspect]
     Active Substance: RISEDRONATE SODIUM
     Indication: OSTEOPOROSIS
     Dosage: 35 MG, WEEKLY
     Route: 048
     Dates: start: 2013, end: 2015
  3. PAMIDRONATE DISODIUM. [Suspect]
     Active Substance: PAMIDRONATE DISODIUM
     Dosage: 1.0 MG/KG, EVERY SIX MONTHS DURING THREE DAYS
     Route: 042
     Dates: end: 2012

REACTIONS (3)
  - Pathological fracture [Unknown]
  - Atypical femur fracture [Recovered/Resolved]
  - Multiple fractures [Unknown]

NARRATIVE: CASE EVENT DATE: 2012
